FAERS Safety Report 8113857-8 (Version None)
Quarter: 2012Q1

REPORT INFORMATION
  Report Type: 
  Country: None (occurrence: None)
  Receive Date: 20120203
  Receipt Date: 20120201
  Transmission Date: 20120608
  Serious: Yes (Hospitalization)
  Sender: FDA-Public Use
  Company Number: PHHO2010US13546

PATIENT
  Sex: Female
  Weight: 86.168 kg

DRUGS (7)
  1. GLUCOSAMINE [Concomitant]
  2. ILARIS [Suspect]
     Indication: RHEUMATOID ARTHRITIS
     Dosage: UNK
     Dates: start: 20100706
  3. NAPROXEN [Suspect]
     Indication: RHEUMATOID ARTHRITIS
     Dosage: UNK
     Dates: start: 20100706
  4. OMEPRAZOLE [Suspect]
     Indication: RHEUMATOID ARTHRITIS
     Dosage: UNK
     Dates: start: 20100706
  5. BLINDED NO TREATMENT RECEIVED [Suspect]
     Indication: RHEUMATOID ARTHRITIS
     Dosage: UNK
     Dates: start: 20100706
  6. MULTI-VITAMINS [Concomitant]
  7. PRILOSEC [Concomitant]

REACTIONS (3)
  - CELLULITIS [None]
  - PRURITUS [None]
  - ERYTHEMA [None]
